FAERS Safety Report 4335958-2 (Version None)
Quarter: 2004Q2

REPORT INFORMATION
  Report Type: 
  Country: None (occurrence: None)
  Receive Date: 20040406
  Receipt Date: 20040323
  Transmission Date: 20050107
  Serious: Yes (Hospitalization, Other)
  Sender: FDA-Public Use
  Company Number: 2001-CN-00015

PATIENT
  Age: 71 Year
  Sex: Male

DRUGS (7)
  1. FLOMAX [Suspect]
     Indication: BENIGN PROSTATIC HYPERPLASIA
     Dosage: 0.4 MG (0.4 MG, 1 TABLET DAILY)   PO
     Route: 048
     Dates: end: 20001028
  2. COUMADIN [Concomitant]
  3. NOVOHYDRAZIDE (HYDROCHLOROTHIAZIDE) [Concomitant]
  4. NOVA-DILTAZEM [Concomitant]
  5. LANOXIN [Concomitant]
  6. NOVA-GLYBURIDE [Concomitant]
  7. MULTI-VITAMINS [Concomitant]

REACTIONS (5)
  - ACTIVITIES OF DAILY LIVING IMPAIRED [None]
  - ARTHROPATHY [None]
  - IMPAIRED DRIVING ABILITY [None]
  - MYOPATHY [None]
  - PARALYSIS [None]
